FAERS Safety Report 5518418-2 (Version None)
Quarter: 2007Q4

REPORT INFORMATION
  Report Type: 
  Country: None (occurrence: None)
  Receive Date: 20071113
  Receipt Date: 20071113
  Transmission Date: 20080405
  Serious: Yes (Other)
  Sender: FDA-Public Use
  Company Number: None

PATIENT
  Age: 49 Year
  Sex: Male

DRUGS (1)
  1. HUMIRA [Suspect]
     Indication: PSORIASIS
     Dosage: HUMIRA EVERY 15 DAYS SQ MONTHS
     Route: 058
     Dates: start: 20070817, end: 20071109

REACTIONS (1)
  - DIZZINESS POSTURAL [None]
